FAERS Safety Report 14484309 (Version 1)
Quarter: 2018Q1

REPORT INFORMATION
  Report Type: Spontaneous
  Country: JP (occurrence: JP)
  Receive Date: 20180205
  Receipt Date: 20180205
  Transmission Date: 20180509
  Serious: Yes (Death, Hospitalization)
  Sender: FDA-Public Use
  Company Number: JP-ROCHE-535501

PATIENT
  Age: 71 Year
  Sex: Male

DRUGS (7)
  1. PINORUBIN [Concomitant]
     Active Substance: PIRARUBICIN
     Indication: DIFFUSE LARGE B-CELL LYMPHOMA
     Dosage: SUBSEQUESNT DOSES ON 10/MAR/2007 AND 07/APR/2007
     Route: 042
  2. ONCOVIN [Concomitant]
     Active Substance: VINCRISTINE SULFATE
     Indication: DIFFUSE LARGE B-CELL LYMPHOMA
     Dosage: SUBSEQUESNT DOSES ON 10/MAR/2007 AND 07/APR/2007
     Route: 042
  3. LOXONIN [Concomitant]
     Active Substance: LOXOPROFEN SODIUM
     Indication: PREMEDICATION
     Dosage: SUBSEQUESNT DOSES ON 10/MAR/2007 AND 07/APR/2007
     Route: 048
  4. ENDOXAN [Concomitant]
     Active Substance: CYCLOPHOSPHAMIDE
     Dosage: SUBSEQUESNT DOSES ON 10/MAR/2007 AND 07/APR/2007
     Route: 042
     Dates: start: 20070210
  5. TAVEGYL [Concomitant]
     Active Substance: CLEMASTINE FUMARATE
     Indication: PREMEDICATION
     Dosage: SUBSEQUESNT DOSES ON 10/MAR/2007 AND 07/APR/2007
     Route: 048
  6. RITUXAN [Suspect]
     Active Substance: RITUXIMAB
     Indication: DIFFUSE LARGE B-CELL LYMPHOMA
     Dosage: SUBSEQUESNT DOSES ON 10/MAR/2007 AND 07/APR/2007
     Route: 042
  7. PREDONINE [Concomitant]
     Active Substance: PREDNISOLONE
     Indication: PRODUCT USED FOR UNKNOWN INDICATION
     Dosage: SUBSEQUESNT DOSES ON 10/MAR/2007 AND 07/APR/2007
     Route: 048

REACTIONS (3)
  - Jaundice [Recovered/Resolved]
  - Rectal cancer [Fatal]
  - Hepatic cancer [Fatal]

NARRATIVE: CASE EVENT DATE: 20070626
